FAERS Safety Report 19454591 (Version 1)
Quarter: 2021Q2

REPORT INFORMATION
  Report Type: Spontaneous
  Country: US (occurrence: US)
  Receive Date: 20210623
  Receipt Date: 20210623
  Transmission Date: 20210717
  Serious: Yes (Other)
  Sender: FDA-Public Use
  Company Number: US-ASTRAZENECA-2021A553133

PATIENT
  Sex: Female

DRUGS (1)
  1. ZOMIG [Suspect]
     Active Substance: ZOLMITRIPTAN
     Route: 045

REACTIONS (5)
  - Gait inability [Unknown]
  - Hypoacusis [Unknown]
  - Paralysis [Unknown]
  - Urinary retention [Unknown]
  - Decreased activity [Unknown]
